FAERS Safety Report 8062819-8 (Version None)
Quarter: 2012Q1

REPORT INFORMATION
  Report Type: 
  Country: None (occurrence: None)
  Receive Date: 20120123
  Receipt Date: 20120118
  Transmission Date: 20120608
  Serious: Yes (Hospitalization)
  Sender: FDA-Public Use
  Company Number: US-JNJFOC-20110310225

PATIENT
  Sex: Male

DRUGS (1)
  1. LEVAQUIN [Suspect]
     Indication: PYREXIA
     Route: 042
     Dates: start: 20071116

REACTIONS (4)
  - ARTHRALGIA [None]
  - ROTATOR CUFF SYNDROME [None]
  - STEVENS-JOHNSON SYNDROME [None]
  - TENDONITIS [None]
